FAERS Safety Report 7319097-4 (Version None)
Quarter: 2011Q1

REPORT INFORMATION
  Report Type: 
  Country: None (occurrence: None)
  Receive Date: 20110228
  Receipt Date: 20100930
  Transmission Date: 20110831
  Serious: Yes (Other)
  Sender: FDA-Public Use
  Company Number: US-AMGEN-QUU433673

PATIENT
  Age: 66 Year
  Sex: Male
  Weight: 92.2 kg

DRUGS (4)
  1. CORTICOSTEROID NOS [Concomitant]
     Dosage: UNK UNK, UNK
     Dates: start: 20090925
  2. NPLATE [Suspect]
     Indication: IDIOPATHIC THROMBOCYTOPENIC PURPURA
     Dosage: 250 A?G, UNK
     Dates: start: 20091203, end: 20100308
  3. NPLATE [Suspect]
     Dates: start: 20091123, end: 20100308
  4. RITUXIMAB [Concomitant]

REACTIONS (1)
  - THERAPEUTIC RESPONSE DECREASED [None]
